FAERS Safety Report 15185187 (Version 1)
Quarter: 2018Q3

REPORT INFORMATION
  Report Type: Spontaneous
  Country: US (occurrence: US)
  Receive Date: 20180723
  Receipt Date: 20180723
  Transmission Date: 20181010
  Serious: No
  Sender: FDA-Public Use
  Company Number: US-GALDERMA-US18017180

PATIENT
  Age: 26 Year
  Sex: Female

DRUGS (3)
  1. PROACTIV MD ADAPALENE ACNE TREATMENT [Suspect]
     Active Substance: ADAPALENE
     Indication: ACNE CYSTIC
     Dosage: 0.1%
     Route: 061
     Dates: start: 20180331, end: 20180412
  2. PROACTIV DAILY PROTECTION PLUS SUNSCREEN SPF 30 [Concomitant]
     Indication: ACNE CYSTIC
     Route: 061
     Dates: start: 20180331, end: 20180412
  3. PROACTIV MD DEEP CLEANSING FACE WASH [Concomitant]
     Active Substance: COSMETICS
     Indication: ACNE CYSTIC
     Route: 061
     Dates: start: 20180331, end: 20180412

REACTIONS (1)
  - Acne [Recovering/Resolving]

NARRATIVE: CASE EVENT DATE: 20180412
